FAERS Safety Report 14505216 (Version 1)
Quarter: 2018Q1

REPORT INFORMATION
  Report Type: Report from Study
  Country: MX (occurrence: MX)
  Receive Date: 20180208
  Receipt Date: 20180208
  Transmission Date: 20180509
  Serious: Yes (Hospitalization, Other)
  Sender: FDA-Public Use
  Company Number: PHHY2018MX009719

PATIENT
  Sex: Male
  Weight: 90 kg

DRUGS (3)
  1. ASPIRIN. [Concomitant]
     Active Substance: ASPIRIN
     Indication: CARDIOVASCULAR DISORDER
     Dosage: 1 DF, QD
     Route: 048
  2. TASIGNA [Suspect]
     Active Substance: NILOTINIB
     Indication: PHILADELPHIA CHROMOSOME POSITIVE
  3. TASIGNA [Suspect]
     Active Substance: NILOTINIB
     Indication: CHRONIC MYELOID LEUKAEMIA
     Dosage: 2 DF, QD
     Route: 048
     Dates: start: 2010

REACTIONS (8)
  - Spinal column injury [Unknown]
  - Gait inability [Not Recovered/Not Resolved]
  - Accident [Unknown]
  - Fall [Unknown]
  - Coma [Unknown]
  - Cerebrovascular accident [Recovered/Resolved with Sequelae]
  - Cerebral infarction [Unknown]
  - Hypokinesia [Unknown]

NARRATIVE: CASE EVENT DATE: 2011
